FAERS Safety Report 8071725-4 (Version None)
Quarter: 2012Q1

REPORT INFORMATION
  Report Type: 
  Country: None (occurrence: None)
  Receive Date: 20120125
  Receipt Date: 20120117
  Transmission Date: 20120608
  Serious: Yes (Hospitalization)
  Sender: FDA-Public Use
  Company Number: US-MERCK-1109USA01916

PATIENT
  Age: 46 Year
  Sex: Female

DRUGS (1)
  1. FOSAMAX [Suspect]
     Indication: OSTEOPOROSIS
     Route: 048
     Dates: start: 19970101, end: 20110101

REACTIONS (6)
  - UPPER LIMB FRACTURE [None]
  - TOOTH DISORDER [None]
  - WRIST FRACTURE [None]
  - DEPRESSION [None]
  - HIP FRACTURE [None]
  - HEARING IMPAIRED [None]
